FAERS Safety Report 12244819 (Version 7)
Quarter: 2016Q2

REPORT INFORMATION
  Report Type: Report from Study
  Country: CA (occurrence: CA)
  Receive Date: 20160407
  Receipt Date: 20160509
  Transmission Date: 20160815
  Serious: Yes (Other)
  Sender: FDA-Public Use
  Company Number: CA-ROCHE-707466

PATIENT
  Age: 46 Year
  Sex: Female
  Weight: 43.13 kg

DRUGS (25)
  1. MORPHINE [Concomitant]
     Active Substance: MORPHINE
  2. OMEPRAZOLE. [Concomitant]
     Active Substance: OMEPRAZOLE
  3. PREDNISONE. [Concomitant]
     Active Substance: PREDNISONE
  4. GABAPENTIN. [Concomitant]
     Active Substance: GABAPENTIN
  5. PREDNISONE. [Concomitant]
     Active Substance: PREDNISONE
  6. CIPRALEX [Concomitant]
     Active Substance: ESCITALOPRAM OXALATE
  7. BENADRYL [Suspect]
     Active Substance: DIPHENHYDRAMINE HYDROCHLORIDE
     Indication: PREMEDICATION
     Route: 048
     Dates: start: 20100520, end: 20140702
  8. ALENDRONATE [Concomitant]
     Active Substance: ALENDRONATE SODIUM
  9. RITUXAN [Suspect]
     Active Substance: RITUXIMAB
     Indication: RHEUMATOID ARTHRITIS
     Dosage: SECOND INFUSION CANCELLED, LAST INFUSION DATE: 09-MAY-2012
     Route: 042
  10. ARTHROTEC [Concomitant]
     Active Substance: DICLOFENAC SODIUM\MISOPROSTOL
  11. DIAZEPAM. [Concomitant]
     Active Substance: DIAZEPAM
  12. TYLENOL [Concomitant]
     Active Substance: ACETAMINOPHEN
  13. SPIRIVA [Concomitant]
     Active Substance: TIOTROPIUM BROMIDE MONOHYDRATE
  14. TUMS [Concomitant]
     Active Substance: CALCIUM CARBONATE
  15. DIDROCAL [Concomitant]
     Active Substance: CALCIUM CARBONATE\ETIDRONATE DISODIUM
  16. BENADRYL [Suspect]
     Active Substance: DIPHENHYDRAMINE HYDROCHLORIDE
     Route: 042
     Dates: start: 20140716
  17. LORAZEPAM. [Concomitant]
     Active Substance: LORAZEPAM
  18. HYDROMORPH CONTIN [Concomitant]
     Active Substance: HYDROMORPHONE
  19. ACETAMINOPHEN. [Concomitant]
     Active Substance: ACETAMINOPHEN
     Indication: PREMEDICATION
     Route: 048
     Dates: start: 20100520, end: 20140716
  20. AIROMIR [Concomitant]
     Active Substance: ALBUTEROL SULFATE
  21. SENOKOT [Concomitant]
     Active Substance: SENNOSIDES
  22. METHYLPREDNISOLONE. [Concomitant]
     Active Substance: METHYLPREDNISOLONE
     Indication: PREMEDICATION
     Route: 042
     Dates: start: 20100520
  23. PROPRANOLOL [Concomitant]
     Active Substance: PROPRANOLOL\PROPRANOLOL HYDROCHLORIDE
  24. LYRICA [Concomitant]
     Active Substance: PREGABALIN
  25. METOPROLOL. [Concomitant]
     Active Substance: METOPROLOL

REACTIONS (25)
  - Feeling of body temperature change [Not Recovered/Not Resolved]
  - Malaise [Unknown]
  - Anxiety [Unknown]
  - Heart rate increased [Unknown]
  - Weight decreased [Not Recovered/Not Resolved]
  - Rib fracture [Unknown]
  - Hypertension [Unknown]
  - Osteoporosis [Not Recovered/Not Resolved]
  - Chronic obstructive pulmonary disease [Unknown]
  - Candida infection [Not Recovered/Not Resolved]
  - Carpal tunnel syndrome [Recovered/Resolved]
  - Localised infection [Unknown]
  - Blood pressure increased [Unknown]
  - Cough [Recovered/Resolved]
  - Wrist fracture [Recovered/Resolved]
  - Headache [Unknown]
  - Dizziness [Recovered/Resolved]
  - Influenza [Unknown]
  - Abasia [Unknown]
  - Neck pain [Unknown]
  - Diarrhoea [Not Recovered/Not Resolved]
  - Headache [Unknown]
  - Wound [Unknown]
  - Dyspnoea [Unknown]
  - Dyspnoea [Recovered/Resolved]

NARRATIVE: CASE EVENT DATE: 20100602
